FAERS Safety Report 9684145 (Version 5)
Quarter: 2013Q4

REPORT INFORMATION
  Report Type: Spontaneous
  Country: RS (occurrence: RS)
  Receive Date: 20131112
  Receipt Date: 20131226
  Transmission Date: 20140711
  Serious: Yes (Hospitalization)
  Sender: FDA-Public Use
  Company Number: RS-ROCHE-1301024

PATIENT
  Age: 50 Year
  Sex: Female

DRUGS (8)
  1. MABTHERA [Suspect]
     Indication: RHEUMATOID ARTHRITIS
     Route: 041
     Dates: start: 20091215, end: 20120510
  2. METHOTREXATE [Suspect]
     Indication: RHEUMATOID ARTHRITIS
     Route: 048
     Dates: start: 2006, end: 2012
  3. METHOTREXATE [Suspect]
     Route: 048
  4. FOLAN [Concomitant]
     Route: 048
  5. GASTROLOC [Concomitant]
     Route: 048
  6. PRONISON [Concomitant]
     Route: 048
  7. AFLAMIL [Concomitant]
     Route: 048
  8. ALPHA D3 [Concomitant]
     Route: 065

REACTIONS (2)
  - Encephalomyelitis [Recovered/Resolved]
  - Rheumatoid arthritis [Not Recovered/Not Resolved]
